FAERS Safety Report 11333805 (Version 1)
Quarter: 2015Q3

REPORT INFORMATION
  Report Type: Spontaneous
  Country: US (occurrence: US)
  Receive Date: 20150803
  Receipt Date: 20150803
  Transmission Date: 20151125
  Serious: Yes (Other)
  Sender: FDA-Public Use
  Company Number: US-ELI_LILLY_AND_COMPANY-US200902003814

PATIENT
  Age: 45 Year
  Sex: Male

DRUGS (2)
  1. ZYPREXA [Suspect]
     Active Substance: OLANZAPINE
     Indication: GENERALISED ANXIETY DISORDER
     Dosage: 30 MG, DAILY (1/D)
  2. ALCOHOL. [Concomitant]
     Active Substance: ALCOHOL

REACTIONS (2)
  - Prescribed overdose [Recovered/Resolved]
  - Neuroleptic malignant syndrome [Recovering/Resolving]
